FAERS Safety Report 10486958 (Version 1)
Quarter: 2014Q4

REPORT INFORMATION
  Report Type: Spontaneous
  Country: IN (occurrence: IN)
  Receive Date: 20141001
  Receipt Date: 20141001
  Transmission Date: 20150528
  Serious: Yes (Death, Other)
  Sender: FDA-Public Use
  Company Number: IN-CELGENE-078-20785-14093235

PATIENT
  Age: 35 Year
  Sex: Male

DRUGS (1)
  1. THALIDOMIDE [Suspect]
     Active Substance: THALIDOMIDE
     Indication: MYELOFIBROSIS
     Route: 048

REACTIONS (2)
  - Myelofibrosis [Unknown]
  - Cardiac arrest [Fatal]
